FAERS Safety Report 17558863 (Version 2)
Quarter: 2020Q1

REPORT INFORMATION
  Report Type: Report from Study
  Country: US (occurrence: US)
  Receive Date: 20200318
  Receipt Date: 20200326
  Transmission Date: 20200409
  Serious: Yes (Other)
  Sender: FDA-Public Use
  Company Number: US-BEH-2020114444

PATIENT
  Age: 60 Year
  Sex: Female
  Weight: 76.64 kg

DRUGS (1)
  1. HIZENTRA [Suspect]
     Active Substance: HUMAN IMMUNOGLOBULIN G
     Indication: IMMUNODEFICIENCY
     Dosage: 16 GMS, 85.5 ML/HR, EVERY 16 DAYS
     Route: 058
     Dates: start: 20200306

REACTIONS (4)
  - Tremor [Recovering/Resolving]
  - Muscle spasms [Recovering/Resolving]
  - Nausea [Recovering/Resolving]
  - Vomiting [Recovering/Resolving]

NARRATIVE: CASE EVENT DATE: 20200307
